FAERS Safety Report 26207932 (Version 1)
Quarter: 2025Q4

REPORT INFORMATION
  Report Type: Spontaneous
  Country: CN (occurrence: CN)
  Receive Date: 20251229
  Receipt Date: 20251229
  Transmission Date: 20260117
  Serious: Yes (Other)
  Sender: MERCK SHARP & DOHME LLC
  Company Number: CN-SICHUAN KELUN-BIOTECH BIOPHARMACEUTICAL CO. LTD.-2025KB000338

PATIENT
  Age: 54 Year
  Sex: Male
  Weight: 51.5 kg

DRUGS (4)
  1. SACITUZUMAB TIRUMOTECAN [Suspect]
     Active Substance: SACITUZUMAB TIRUMOTECAN
     Indication: Squamous cell carcinoma of lung
     Dosage: STRENGTH: 200 MG/VIAL
     Route: 041
     Dates: start: 20251129, end: 20251129
  2. IVONESCIMAB [Suspect]
     Active Substance: IVONESCIMAB
     Indication: Squamous cell carcinoma of lung
     Route: 041
     Dates: start: 20251128, end: 20251128
  3. SODIUM CHLORIDE [Concomitant]
     Active Substance: SODIUM CHLORIDE
     Indication: Medication dilution
     Dosage: TIME INTERVAL: TOTAL
     Route: 041
     Dates: start: 20251128, end: 20251128
  4. SODIUM CHLORIDE [Concomitant]
     Active Substance: SODIUM CHLORIDE
     Indication: Medication dilution
     Dosage: TIME INTERVAL: TOTAL
     Route: 041
     Dates: start: 20251129, end: 20251129

REACTIONS (2)
  - Full blood count decreased [Unknown]
  - Off label use [Unknown]

NARRATIVE: CASE EVENT DATE: 20251202
